FAERS Safety Report 24073891 (Version 4)
Quarter: 2024Q4

REPORT INFORMATION
  Report Type: Spontaneous
  Country: US (occurrence: US)
  Receive Date: 20240710
  Receipt Date: 20241226
  Transmission Date: 20250115
  Serious: No
  Sender: PFIZER
  Company Number: US-PFIZER INC-PV202400049180

PATIENT
  Age: 84 Year
  Sex: Female
  Weight: 62.14 kg

DRUGS (3)
  1. BRAFTOVI [Suspect]
     Active Substance: ENCORAFENIB
     Indication: Colon cancer stage IV
     Dosage: 225 MG, 1X/DAY (75 MG, 3 CAPSULES, ONCE A DAY)
     Route: 048
     Dates: start: 20240425
  2. BRAFTOVI [Suspect]
     Active Substance: ENCORAFENIB
     Dosage: 300 MG, DAILY (75 MG, 4 CAPSULES, DAILY)
     Route: 048
  3. ONDANSETRON [Concomitant]
     Active Substance: ONDANSETRON
     Indication: Nausea
     Dosage: 4 MG, 3X/DAY (1 TABLET BY MOUTH THREE TIMES PER DAY)
     Route: 048

REACTIONS (2)
  - Malaise [Unknown]
  - Off label use [Unknown]

NARRATIVE: CASE EVENT DATE: 20240425
